FAERS Safety Report 18871093 (Version 1)
Quarter: 2021Q1

REPORT INFORMATION
  Report Type: Spontaneous
  Country: US (occurrence: US)
  Receive Date: 20210210
  Receipt Date: 20210210
  Transmission Date: 20210420
  Serious: No
  Sender: FDA-Public Use
  Company Number: US-BAUSCH-BL-2021-003882

PATIENT
  Sex: Male

DRUGS (1)
  1. PENICILLAMINE [Suspect]
     Active Substance: PENICILLAMINE
     Indication: HEPATO-LENTICULAR DEGENERATION
     Route: 065

REACTIONS (6)
  - Drug intolerance [Unknown]
  - Tremor [Unknown]
  - Balance disorder [Unknown]
  - Amnesia [Unknown]
  - Hallucination, visual [Unknown]
  - Gastrointestinal disorder [Unknown]
